FAERS Safety Report 14865289 (Version 1)
Quarter: 2018Q2

REPORT INFORMATION
  Report Type: Spontaneous
  Country: US (occurrence: US)
  Receive Date: 20180508
  Receipt Date: 20180508
  Transmission Date: 20180711
  Serious: No
  Sender: FDA-Public Use
  Company Number: US-ALKERMES INC.-ALK-2017-005011

PATIENT
  Age: 27 Year
  Sex: Male
  Weight: 87.98 kg

DRUGS (3)
  1. VIVITROL [Suspect]
     Active Substance: NALTREXONE
     Indication: DRUG DEPENDENCE
     Dosage: 380 MG, QMO
     Route: 030
     Dates: start: 20170612, end: 20170612
  2. VIVITROL [Suspect]
     Active Substance: NALTREXONE
     Dosage: 380 MG, QMO
     Route: 030
     Dates: start: 20171117
  3. BUSPAR [Concomitant]
     Active Substance: BUSPIRONE HYDROCHLORIDE
     Indication: PRODUCT USED FOR UNKNOWN INDICATION
     Dosage: UNK
     Dates: start: 20171116

REACTIONS (9)
  - Tremor [Unknown]
  - Hypertension [Unknown]
  - Euphoric mood [Unknown]
  - Migraine [Unknown]
  - Therapeutic response shortened [Unknown]
  - Dizziness [Unknown]
  - Fatigue [Unknown]
  - Hyperhidrosis [Unknown]
  - Drug dependence [Unknown]

NARRATIVE: CASE EVENT DATE: 2017
